FAERS Safety Report 20645541 (Version 1)
Quarter: 2022Q1

REPORT INFORMATION
  Report Type: Spontaneous
  Country: US (occurrence: US)
  Receive Date: 20220328
  Receipt Date: 20220328
  Transmission Date: 20220423
  Serious: No
  Sender: FDA-Public Use
  Company Number: US-GILEAD-2022-0575071

PATIENT
  Sex: Male

DRUGS (11)
  1. EPCLUSA [Suspect]
     Active Substance: SOFOSBUVIR\VELPATASVIR
     Indication: Chronic hepatitis C
     Dosage: 1 DOSAGE FORM, QD
     Route: 048
  2. VIAGRA [Concomitant]
     Active Substance: SILDENAFIL CITRATE
  3. VITAMIN D NOS [Concomitant]
     Active Substance: VITAMIN D NOS
  4. VITAMIN C [Concomitant]
     Active Substance: ASCORBIC ACID
  5. VITAMIN B12 [Concomitant]
     Active Substance: CYANOCOBALAMIN
  6. PREDNISONE [Concomitant]
     Active Substance: PREDNISONE
  7. ZINC [Concomitant]
     Active Substance: ZINC
  8. GLUTOSE [Concomitant]
     Active Substance: DEXTROSE
  9. HERBALS\TURMERIC [Concomitant]
     Active Substance: HERBALS\TURMERIC
  10. MINERALS\VITAMINS [Concomitant]
     Active Substance: MINERALS\VITAMINS
  11. VITAMIN E [Concomitant]
     Active Substance: .ALPHA.-TOCOPHEROL

REACTIONS (5)
  - Diarrhoea [Unknown]
  - Oropharyngeal pain [Not Recovered/Not Resolved]
  - Dysphagia [Unknown]
  - Epistaxis [Unknown]
  - Dyspnoea [Unknown]
